FAERS Safety Report 4297165-1 (Version None)
Quarter: 2004Q1

REPORT INFORMATION
  Report Type: 
  Country: None (occurrence: None)
  Receive Date: 20040217
  Receipt Date: 20040217
  Transmission Date: 20041129
  Serious: No
  Sender: FDA-Public Use
  Company Number: None

PATIENT
  Age: 37 Year
  Sex: Female

DRUGS (3)
  1. LEXAPRO [Suspect]
     Dosage: TABS
  2. LEVOXYL 25 MCG [Suspect]
     Dosage: TABS
  3. XANAX [Suspect]
     Dosage: TABS

REACTIONS (1)
  - MEDICATION ERROR [None]
